FAERS Safety Report 8111645-X (Version None)
Quarter: 2012Q1

REPORT INFORMATION
  Report Type: 
  Country: None (occurrence: None)
  Receive Date: 20120203
  Receipt Date: 20120127
  Transmission Date: 20120608
  Serious: Yes (Other)
  Sender: FDA-Public Use
  Company Number: US-PFIZER INC-2012024982

PATIENT
  Sex: Female

DRUGS (1)
  1. LYRICA [Suspect]
     Dosage: UNK

REACTIONS (12)
  - SOMNOLENCE [None]
  - WEIGHT DECREASED [None]
  - HEADACHE [None]
  - DEPRESSION [None]
  - PAIN [None]
  - MOVEMENT DISORDER [None]
  - OROPHARYNGEAL PAIN [None]
  - FATIGUE [None]
  - VOMITING [None]
  - LOSS OF EMPLOYMENT [None]
  - DISTURBANCE IN ATTENTION [None]
  - FOOD INTOLERANCE [None]
